FAERS Safety Report 9124516 (Version 1)
Quarter: 2013Q1

REPORT INFORMATION
  Report Type: Spontaneous
  Country: US (occurrence: US)
  Receive Date: 20130227
  Receipt Date: 20130227
  Transmission Date: 20140127
  Serious: Yes (Other)
  Sender: FDA-Public Use
  Company Number: CHPA2013US001149

PATIENT
  Age: 18 Month
  Sex: Female

DRUGS (1)
  1. TRIAMINIC INFANTS FEVER REDUCER PAIN RELIEVER - GRAPE [Suspect]
     Indication: PYREXIA
     Dosage: UNK, UNK

REACTIONS (5)
  - Pyrexia [Recovered/Resolved]
  - Condition aggravated [Recovered/Resolved]
  - Incorrect dose administered [Unknown]
  - Drug ineffective [Unknown]
  - Overdose [Unknown]
